FAERS Safety Report 5386378-3 (Version None)
Quarter: 2007Q3

REPORT INFORMATION
  Report Type: 
  Country: None (occurrence: None)
  Receive Date: 20070713
  Receipt Date: 20070705
  Transmission Date: 20080115
  Serious: Yes (Hospitalization)
  Sender: FDA-Public Use
  Company Number: AR-ASTRAZENECA-2007UW13381

PATIENT
  Age: 26481 Day
  Sex: Female

DRUGS (11)
  1. SEROQUEL [Suspect]
     Indication: MAJOR DEPRESSION
     Route: 048
     Dates: start: 20070510
  2. SEROQUEL [Suspect]
     Route: 048
     Dates: start: 20070513
  3. SEROQUEL [Suspect]
     Route: 048
     Dates: start: 20070516
  4. SEROQUEL [Suspect]
     Route: 048
     Dates: start: 20070523
  5. SEROQUEL [Suspect]
     Route: 048
     Dates: start: 20070527, end: 20070528
  6. ZENTIUS [Concomitant]
     Indication: MAJOR DEPRESSION
     Route: 048
     Dates: end: 20070502
  7. AKINETON [Concomitant]
     Indication: EXTRAPYRAMIDAL DISORDER
     Route: 048
     Dates: end: 20070416
  8. AKINETON [Concomitant]
     Route: 048
     Dates: start: 20070417, end: 20070423
  9. RIATUL [Concomitant]
     Indication: MAJOR DEPRESSION
     Route: 048
     Dates: end: 20070416
  10. RIATUL [Concomitant]
     Route: 048
     Dates: start: 20070417, end: 20070423
  11. CLONAGIN [Concomitant]
     Indication: MAJOR DEPRESSION
     Route: 048
     Dates: end: 20070423

REACTIONS (1)
  - DEPRESSION [None]
